FAERS Safety Report 14771809 (Version 1)
Quarter: 2018Q2

REPORT INFORMATION
  Report Type: Spontaneous
  Country: US (occurrence: US)
  Receive Date: 20180417
  Receipt Date: 20180417
  Transmission Date: 20180711
  Serious: No
  Sender: FDA-Public Use
  Company Number: ES-ALLERGAN-1757242US

PATIENT
  Sex: Female
  Weight: 30.38 kg

DRUGS (1)
  1. LATISSE [Suspect]
     Active Substance: BIMATOPROST
     Indication: PRODUCT USED FOR UNKNOWN INDICATION
     Dosage: 4 GTT, QD
     Route: 061

REACTIONS (5)
  - Wrong technique in product usage process [Unknown]
  - Growth of eyelashes [Unknown]
  - Drug ineffective [Unknown]
  - Product use complaint [Unknown]
  - Blepharal pigmentation [Unknown]
